FAERS Safety Report 6493437-0 (Version None)
Quarter: 2009Q4

REPORT INFORMATION
  Report Type: 
  Country: None (occurrence: None)
  Receive Date: 20091211
  Receipt Date: 20091211
  Transmission Date: 20100525
  Serious: Yes (Hospitalization)
  Sender: FDA-Public Use
  Company Number: None

PATIENT
  Sex: Female
  Weight: 96.8 kg

DRUGS (3)
  1. CARBOPLATIN [Suspect]
     Dosage: 725 MG
  2. ERBITUX [Suspect]
     Dosage: 500 MG
  3. PACLITAXEL [Suspect]
     Dosage: 400 MG

REACTIONS (2)
  - NAUSEA [None]
  - VOMITING [None]
